FAERS Safety Report 4363246-7 (Version None)
Quarter: 2004Q2

REPORT INFORMATION
  Report Type: 
  Country: None (occurrence: None)
  Receive Date: 20040518
  Receipt Date: 20040503
  Transmission Date: 20050107
  Serious: Yes (Hospitalization)
  Sender: FDA-Public Use
  Company Number: 2004AP02505

PATIENT
  Age: 91 Year
  Sex: Female
  Weight: 50 kg

DRUGS (10)
  1. ARIMIDEX [Suspect]
     Indication: BREAST CANCER
     Dosage: 1 MG DAILY PO
     Route: 048
     Dates: end: 20031215
  2. LANOXIN [Concomitant]
  3. TOLVON [Concomitant]
  4. THIAMINE [Concomitant]
  5. FEFOL [Concomitant]
  6. VITAMIN B COMPLEX CAP [Concomitant]
  7. POLYTEARS [Concomitant]
  8. PERIACTIN [Concomitant]
  9. SOMAC [Concomitant]
  10. ROCALTROL [Concomitant]

REACTIONS (3)
  - CHOLESTASIS [None]
  - HAEMATEMESIS [None]
  - LIVER FUNCTION TEST ABNORMAL [None]
